FAERS Safety Report 19069379 (Version 1)
Quarter: 2021Q1

REPORT INFORMATION
  Report Type: Spontaneous
  Country: SE (occurrence: SE)
  Receive Date: 20210329
  Receipt Date: 20210329
  Transmission Date: 20210420
  Serious: Yes (Other)
  Sender: FDA-Public Use
  Company Number: NVSC2021SE066942

PATIENT
  Sex: Male

DRUGS (2)
  1. DONEPEZIL. [Suspect]
     Active Substance: DONEPEZIL
     Indication: DISTURBANCE IN ATTENTION
     Dosage: 5 MG
     Route: 065
  2. DONEPEZIL. [Suspect]
     Active Substance: DONEPEZIL
     Dosage: 10 MG (AFTER ONE MONTH)
     Route: 065

REACTIONS (5)
  - Confusional state [Unknown]
  - Dementia Alzheimer^s type [Unknown]
  - Amnesia [Unknown]
  - Unevaluable event [Unknown]
  - Rash macular [Unknown]
